FAERS Safety Report 7372415-3 (Version None)
Quarter: 2011Q1

REPORT INFORMATION
  Report Type: 
  Country: None (occurrence: None)
  Receive Date: 20110324
  Receipt Date: 20100906
  Transmission Date: 20110831
  Serious: Yes (Other)
  Sender: FDA-Public Use
  Company Number: PHHY2010DE90829

PATIENT
  Sex: Female

DRUGS (1)
  1. EXTAVIA [Suspect]
     Dosage: UNK
     Dates: start: 20100823

REACTIONS (4)
  - LIMB DISCOMFORT [None]
  - GAIT DISTURBANCE [None]
  - VIITH NERVE PARALYSIS [None]
  - MULTIPLE SCLEROSIS RELAPSE [None]
